FAERS Safety Report 8478706-7 (Version None)
Quarter: 2012Q2

REPORT INFORMATION
  Report Type: 
  Country: None (occurrence: None)
  Receive Date: 20120629
  Receipt Date: 20120621
  Transmission Date: 20120825
  Serious: Yes (Disabling)
  Sender: FDA-Public Use
  Company Number: JP-JNJFOC-20120611620

PATIENT
  Sex: Female
  Weight: 67 kg

DRUGS (37)
  1. DOXORUBICIN HCL [Suspect]
     Dosage: CYCLE 5
     Route: 042
     Dates: start: 20100804, end: 20100804
  2. DOXORUBICIN HCL [Suspect]
     Dosage: CYCLE 3
     Route: 042
     Dates: start: 20100407, end: 20100407
  3. DOXORUBICIN HCL [Suspect]
     Dosage: CYCLE 1
     Route: 042
     Dates: start: 20100203, end: 20100203
  4. MUCOSTA [Concomitant]
     Indication: PROPHYLAXIS
     Route: 048
     Dates: start: 20110302, end: 20110401
  5. MUCOSTA [Concomitant]
     Route: 048
     Dates: start: 20100929, end: 20101028
  6. MUCOSTA [Concomitant]
     Route: 048
     Dates: start: 20100602, end: 20100701
  7. GRANISETRON [Concomitant]
     Indication: PROPHYLAXIS
     Route: 042
     Dates: start: 20110302, end: 20110302
  8. DOXORUBICIN HCL [Suspect]
     Dosage: CYCLE 11
     Route: 042
     Dates: start: 20110622, end: 20110622
  9. DEXAMETHASONE SODIUM PHOSPHATE [Concomitant]
     Indication: PROPHYLAXIS
     Route: 042
     Dates: start: 20100929, end: 20100929
  10. DEXAMETHASONE SODIUM PHOSPHATE [Concomitant]
     Route: 042
     Dates: start: 20100804, end: 20100804
  11. GRANISETRON [Concomitant]
     Route: 042
     Dates: start: 20100407, end: 20100407
  12. GRANISETRON [Concomitant]
     Route: 042
     Dates: start: 20100804, end: 20100804
  13. GRANISETRON [Concomitant]
     Route: 042
     Dates: start: 20101124, end: 20101124
  14. DOXORUBICIN HCL [Suspect]
     Dosage: CYCLE 9
     Route: 042
     Dates: start: 20110302, end: 20110302
  15. MUCOSTA [Concomitant]
     Route: 048
     Dates: start: 20100407, end: 20100506
  16. DOXORUBICIN HCL [Suspect]
     Indication: MALIGNANT PERITONEAL NEOPLASM
     Dosage: CYCLE 8
     Route: 042
     Dates: start: 20110126, end: 20110126
  17. DEXAMETHASONE SODIUM PHOSPHATE [Concomitant]
     Route: 042
     Dates: start: 20100203
  18. GRANISETRON [Concomitant]
     Route: 042
     Dates: start: 20100602, end: 20100602
  19. GRANISETRON [Concomitant]
     Route: 042
     Dates: start: 20110622, end: 20110622
  20. GRANISETRON [Concomitant]
     Route: 042
     Dates: start: 20111109, end: 20111109
  21. DOXORUBICIN HCL [Suspect]
     Dosage: CYCLE 10
     Route: 042
     Dates: start: 20110420, end: 20110420
  22. DOXORUBICIN HCL [Suspect]
     Dosage: CYCLE 4
     Route: 042
     Dates: start: 20100602, end: 20100602
  23. DOXORUBICIN HCL [Suspect]
     Dosage: CYCLE 2
     Route: 042
     Dates: start: 20100303, end: 20100303
  24. DOXORUBICIN HCL [Suspect]
     Dosage: CYCLE 13
     Route: 042
     Dates: start: 20111109, end: 20111109
  25. MUCOSTA [Concomitant]
     Route: 048
     Dates: start: 20101124, end: 20101223
  26. DEXAMETHASONE SODIUM PHOSPHATE [Concomitant]
     Route: 042
     Dates: start: 20100407, end: 20100407
  27. GRANISETRON [Concomitant]
     Route: 042
     Dates: start: 20110907, end: 20110907
  28. MUCOSTA [Concomitant]
     Route: 048
     Dates: start: 20100804, end: 20100902
  29. DOXORUBICIN HCL [Suspect]
     Dosage: CYCLE 7
     Route: 042
     Dates: start: 20101124, end: 20101124
  30. DOXORUBICIN HCL [Suspect]
     Dosage: CYCLE 6
     Route: 042
     Dates: start: 20100929, end: 20100929
  31. DOXORUBICIN HCL [Suspect]
     Dosage: CYCLE 12
     Route: 042
     Dates: start: 20110907, end: 20110907
  32. MUCOSTA [Concomitant]
     Route: 048
     Dates: start: 20100203
  33. GRANISETRON [Concomitant]
     Route: 042
     Dates: start: 20100929, end: 20100929
  34. MUCOSTA [Concomitant]
     Route: 048
     Dates: start: 20110126, end: 20110225
  35. DEXAMETHASONE SODIUM PHOSPHATE [Concomitant]
     Route: 042
     Dates: start: 20100602, end: 20100602
  36. GRANISETRON [Concomitant]
     Route: 042
     Dates: start: 20110420, end: 20110420
  37. GRANISETRON [Concomitant]
     Route: 042
     Dates: start: 20110126, end: 20110126

REACTIONS (1)
  - INTERSTITIAL LUNG DISEASE [None]
